FAERS Safety Report 21885820 (Version 6)
Quarter: 2025Q3

REPORT INFORMATION
  Report Type: Report from Study
  Country: EU (occurrence: EU)
  Receive Date: 20230119
  Receipt Date: 20250812
  Transmission Date: 20251021
  Serious: Yes (Death, Hospitalization, Other)
  Sender: MYLAN
  Company Number: EU-BRISTOL-MYERS SQUIBB COMPANY-2022-145179

PATIENT
  Age: 58 Year
  Sex: Male

DRUGS (60)
  1. METHOTREXATE [Suspect]
     Active Substance: METHOTREXATE
     Indication: Rheumatoid arthritis
     Dosage: 15 MILLIGRAM, QW
     Route: 065
     Dates: end: 202202
  2. METHOTREXATE [Suspect]
     Active Substance: METHOTREXATE
     Dosage: 15 MILLIGRAM, QW
     Dates: end: 202202
  3. METHOTREXATE [Suspect]
     Active Substance: METHOTREXATE
     Dosage: 15 MILLIGRAM, QW
     Dates: end: 202202
  4. METHOTREXATE [Suspect]
     Active Substance: METHOTREXATE
     Dosage: 15 MILLIGRAM, QW
     Route: 065
     Dates: end: 202202
  5. METHOTREXATE [Suspect]
     Active Substance: METHOTREXATE
     Route: 065
  6. METHOTREXATE [Suspect]
     Active Substance: METHOTREXATE
  7. METHOTREXATE [Suspect]
     Active Substance: METHOTREXATE
  8. METHOTREXATE [Suspect]
     Active Substance: METHOTREXATE
     Route: 065
  9. OLUMIANT [Suspect]
     Active Substance: BARICITINIB
     Indication: Rheumatoid arthritis
  10. OLUMIANT [Suspect]
     Active Substance: BARICITINIB
  11. OLUMIANT [Suspect]
     Active Substance: BARICITINIB
     Route: 065
  12. OLUMIANT [Suspect]
     Active Substance: BARICITINIB
     Route: 065
  13. OLUMIANT [Suspect]
     Active Substance: BARICITINIB
     Dosage: 4 MILLIGRAM, QD
     Dates: start: 201806, end: 20220126
  14. OLUMIANT [Suspect]
     Active Substance: BARICITINIB
     Dosage: 4 MILLIGRAM, QD
     Dates: start: 201806, end: 20220126
  15. OLUMIANT [Suspect]
     Active Substance: BARICITINIB
     Dosage: 4 MILLIGRAM, QD
     Route: 065
     Dates: start: 201806, end: 20220126
  16. OLUMIANT [Suspect]
     Active Substance: BARICITINIB
     Dosage: 4 MILLIGRAM, QD
     Route: 065
     Dates: start: 201806, end: 20220126
  17. ORENCIA [Suspect]
     Active Substance: ABATACEPT
     Indication: Rheumatoid arthritis
     Dosage: 125 MILLIGRAM, Q28D
     Dates: start: 201601
  18. ORENCIA [Suspect]
     Active Substance: ABATACEPT
     Dosage: 125 MILLIGRAM, Q28D
     Dates: start: 201601
  19. ORENCIA [Suspect]
     Active Substance: ABATACEPT
     Dosage: 125 MILLIGRAM, Q28D
     Route: 042
     Dates: start: 201601
  20. ORENCIA [Suspect]
     Active Substance: ABATACEPT
     Dosage: 125 MILLIGRAM, Q28D
     Route: 042
     Dates: start: 201601
  21. ORENCIA [Suspect]
     Active Substance: ABATACEPT
     Dosage: 1000 MILLIGRAM, Q28D
     Dates: start: 20220127
  22. ORENCIA [Suspect]
     Active Substance: ABATACEPT
     Dosage: 1000 MILLIGRAM, Q28D
     Dates: start: 20220127
  23. ORENCIA [Suspect]
     Active Substance: ABATACEPT
     Dosage: 1000 MILLIGRAM, Q28D
     Route: 042
     Dates: start: 20220127
  24. ORENCIA [Suspect]
     Active Substance: ABATACEPT
     Dosage: 1000 MILLIGRAM, Q28D
     Route: 042
     Dates: start: 20220127
  25. TOCILIZUMAB [Suspect]
     Active Substance: TOCILIZUMAB
     Indication: Rheumatoid arthritis
     Dates: start: 201701, end: 201705
  26. TOCILIZUMAB [Suspect]
     Active Substance: TOCILIZUMAB
     Route: 065
     Dates: start: 201701, end: 201705
  27. TOCILIZUMAB [Suspect]
     Active Substance: TOCILIZUMAB
     Route: 065
     Dates: start: 201701, end: 201705
  28. TOCILIZUMAB [Suspect]
     Active Substance: TOCILIZUMAB
     Dates: start: 201701, end: 201705
  29. ABATACEPT [Suspect]
     Active Substance: ABATACEPT
     Indication: Rheumatoid arthritis
  30. ABATACEPT [Suspect]
     Active Substance: ABATACEPT
  31. ABATACEPT [Suspect]
     Active Substance: ABATACEPT
     Route: 065
  32. ABATACEPT [Suspect]
     Active Substance: ABATACEPT
     Route: 065
  33. ABATACEPT [Suspect]
     Active Substance: ABATACEPT
  34. ABATACEPT [Suspect]
     Active Substance: ABATACEPT
  35. ABATACEPT [Suspect]
     Active Substance: ABATACEPT
     Route: 065
  36. ABATACEPT [Suspect]
     Active Substance: ABATACEPT
     Route: 065
  37. FOLIC ACID [Concomitant]
     Active Substance: FOLIC ACID
     Indication: Product used for unknown indication
  38. FOLIC ACID [Concomitant]
     Active Substance: FOLIC ACID
     Route: 065
  39. FOLIC ACID [Concomitant]
     Active Substance: FOLIC ACID
     Route: 065
  40. FOLIC ACID [Concomitant]
     Active Substance: FOLIC ACID
  41. SIMVASTATIN [Concomitant]
     Active Substance: SIMVASTATIN
     Indication: Product used for unknown indication
  42. SIMVASTATIN [Concomitant]
     Active Substance: SIMVASTATIN
     Route: 065
  43. SIMVASTATIN [Concomitant]
     Active Substance: SIMVASTATIN
     Route: 065
  44. SIMVASTATIN [Concomitant]
     Active Substance: SIMVASTATIN
  45. ASPIRIN [Concomitant]
     Active Substance: ASPIRIN
     Indication: Product used for unknown indication
  46. ASPIRIN [Concomitant]
     Active Substance: ASPIRIN
     Route: 065
  47. ASPIRIN [Concomitant]
     Active Substance: ASPIRIN
     Route: 065
  48. ASPIRIN [Concomitant]
     Active Substance: ASPIRIN
  49. PANTOPRAZOLE [Concomitant]
     Active Substance: PANTOPRAZOLE
     Indication: Product used for unknown indication
  50. PANTOPRAZOLE [Concomitant]
     Active Substance: PANTOPRAZOLE
     Route: 065
  51. PANTOPRAZOLE [Concomitant]
     Active Substance: PANTOPRAZOLE
     Route: 065
  52. PANTOPRAZOLE [Concomitant]
     Active Substance: PANTOPRAZOLE
  53. METAMIZOLE [Concomitant]
     Active Substance: METAMIZOLE
     Indication: Product used for unknown indication
  54. METAMIZOLE [Concomitant]
     Active Substance: METAMIZOLE
     Route: 065
  55. METAMIZOLE [Concomitant]
     Active Substance: METAMIZOLE
     Route: 065
  56. METAMIZOLE [Concomitant]
     Active Substance: METAMIZOLE
  57. CHOLECALCIFEROL [Concomitant]
     Active Substance: CHOLECALCIFEROL
     Indication: Product used for unknown indication
  58. CHOLECALCIFEROL [Concomitant]
     Active Substance: CHOLECALCIFEROL
     Route: 065
  59. CHOLECALCIFEROL [Concomitant]
     Active Substance: CHOLECALCIFEROL
     Route: 065
  60. CHOLECALCIFEROL [Concomitant]
     Active Substance: CHOLECALCIFEROL

REACTIONS (15)
  - Cardiogenic shock [Fatal]
  - Multiple organ dysfunction syndrome [Fatal]
  - Cardiac failure [Fatal]
  - Pneumocystis jirovecii pneumonia [Fatal]
  - Sepsis [Fatal]
  - Pulmonary fibrosis [Unknown]
  - Acute kidney injury [Unknown]
  - Acute respiratory failure [Unknown]
  - Squamous cell carcinoma of lung [Unknown]
  - Pertussis [Unknown]
  - Anaemia [Unknown]
  - Bursitis [Unknown]
  - Gastroenteritis [Recovered/Resolved]
  - Spinal osteoarthritis [Unknown]
  - Obesity [Unknown]

NARRATIVE: CASE EVENT DATE: 20210801
